FAERS Safety Report 4850506-6 (Version None)
Quarter: 2005Q4

REPORT INFORMATION
  Report Type: 
  Country: None (occurrence: None)
  Receive Date: 20051207
  Receipt Date: 20051207
  Transmission Date: 20060501
  Serious: Yes (Hospitalization)
  Sender: FDA-Public Use
  Company Number: None

PATIENT
  Age: 89 Year
  Sex: Male
  Weight: 86.2 kg

DRUGS (9)
  1. GATIFLOXACIN [Suspect]
     Dosage: 400 MG QD, X 7 DAYS, BY MOUTH
     Dates: start: 20050901, end: 20050905
  2. FUROSEMIDE [Concomitant]
  3. FELODIPINE [Concomitant]
  4. FIMASTERIDE [Concomitant]
  5. CARBAMAZEPINE [Concomitant]
  6. ASPIRIN [Concomitant]
  7. ATENOLOL [Concomitant]
  8. LANOTRIGINE (LAMICTAL) [Concomitant]
  9. GEMFIBROZIL [Concomitant]

REACTIONS (1)
  - HYPERGLYCAEMIA [None]
